FAERS Safety Report 11009235 (Version 8)
Quarter: 2016Q1

REPORT INFORMATION
  Report Type: Spontaneous
  Country: US (occurrence: US)
  Receive Date: 20150410
  Receipt Date: 20160330
  Transmission Date: 20160525
  Serious: Yes (Other)
  Sender: FDA-Public Use
  Company Number: US-PFIZER INC-2015120402

PATIENT
  Age: 84 Year
  Sex: Female
  Weight: 99 kg

DRUGS (10)
  1. IBRANCE [Suspect]
     Active Substance: PALBOCICLIB
     Dosage: 75 MG, CYCLIC (EVERY OTHER DAY 1- 21 Q 28)
     Route: 048
     Dates: start: 20150417
  2. LETROZOLE. [Concomitant]
     Active Substance: LETROZOLE
     Indication: BREAST CANCER METASTATIC
     Dosage: 2.5 MG, 1X/DAY
     Route: 048
     Dates: start: 20150319
  3. IBRANCE [Suspect]
     Active Substance: PALBOCICLIB
     Dosage: UNK
  4. IBRANCE [Suspect]
     Active Substance: PALBOCICLIB
     Dosage: 175 MG EVERY OTHER DAY
     Route: 048
     Dates: start: 20150508, end: 20160222
  5. IBRANCE [Suspect]
     Active Substance: PALBOCICLIB
     Dosage: 75 MG, CYCLIC (EVERY OTHER DAY, DAY 1-21)
     Dates: start: 20150320
  6. IBRANCE [Suspect]
     Active Substance: PALBOCICLIB
     Dosage: 75 MG, CYCLIC (D1-D21 Q 28 D)
     Route: 048
     Dates: start: 20150320
  7. IBRANCE [Suspect]
     Active Substance: PALBOCICLIB
     Indication: BREAST CANCER METASTATIC
     Dosage: 125 MG, CYCLIC
     Route: 048
     Dates: start: 20150320, end: 20150403
  8. IBRANCE [Suspect]
     Active Substance: PALBOCICLIB
     Dosage: UNK
  9. IBRANCE [Suspect]
     Active Substance: PALBOCICLIB
     Dosage: 75 MG, CYCLIC (1 CAPSULE EVERY OTHER DAY 21 D)
     Route: 048
     Dates: start: 20150320
  10. IBRANCE [Suspect]
     Active Substance: PALBOCICLIB
     Dosage: 75 MG, CYCLIC (D1-D21 Q 28 D)
     Route: 048
     Dates: start: 20150508, end: 20160222

REACTIONS (11)
  - Neutropenia [Unknown]
  - Platelet count decreased [Recovering/Resolving]
  - Breast cancer metastatic [Unknown]
  - Drug intolerance [Unknown]
  - Anaemia [Unknown]
  - Disease progression [Unknown]
  - White blood cell count decreased [Not Recovered/Not Resolved]
  - Pancytopenia [Recovering/Resolving]
  - Erythema [Not Recovered/Not Resolved]
  - Alopecia [Unknown]
  - Skin lesion [Not Recovered/Not Resolved]

NARRATIVE: CASE EVENT DATE: 2015
